FAERS Safety Report 5588532-4 (Version None)
Quarter: 2008Q1

REPORT INFORMATION
  Report Type: 
  Country: None (occurrence: None)
  Receive Date: 20080111
  Receipt Date: 20080103
  Transmission Date: 20080703
  Serious: Yes (Hospitalization)
  Sender: FDA-Public Use
  Company Number: US-WYE-H01535507

PATIENT
  Sex: Female

DRUGS (4)
  1. EFFEXOR XR [Suspect]
     Indication: GENERALISED ANXIETY DISORDER
     Dosage: 37.5 MG EVERY 1 TOT
     Route: 048
     Dates: start: 20071127, end: 20071127
  2. NEXIUM [Concomitant]
     Dosage: UNKNOWN
  3. SYNTHROID [Concomitant]
     Dosage: UNKNOWN
  4. COUMADIN [Concomitant]
     Dosage: UNKNOWN

REACTIONS (4)
  - DEAFNESS [None]
  - DIZZINESS [None]
  - VESTIBULAR NEURONITIS [None]
  - VISION BLURRED [None]
